FAERS Safety Report 17223558 (Version 1)
Quarter: 2020Q1

REPORT INFORMATION
  Report Type: Spontaneous
  Country: US (occurrence: US)
  Receive Date: 20200102
  Receipt Date: 20200102
  Transmission Date: 20200409
  Serious: Yes (Other)
  Sender: FDA-Public Use
  Company Number: US-GLAXOSMITHKLINE-US2019AMR235845

PATIENT
  Sex: Female

DRUGS (1)
  1. IMITREX [Suspect]
     Active Substance: SUMATRIPTAN SUCCINATE
     Indication: MIGRAINE
     Dosage: UNK
     Route: 065

REACTIONS (10)
  - Negative thoughts [Unknown]
  - Migraine [Unknown]
  - Thinking abnormal [Unknown]
  - Headache [Unknown]
  - Suicidal ideation [Unknown]
  - Drug ineffective [Unknown]
  - Feeling abnormal [Unknown]
  - Visual impairment [Unknown]
  - Pain [Unknown]
  - Jaw disorder [Unknown]
